FAERS Safety Report 10749464 (Version 7)
Quarter: 2015Q3

REPORT INFORMATION
  Report Type: Report from Study
  Country: FR (occurrence: FR)
  Receive Date: 20150129
  Receipt Date: 20150909
  Transmission Date: 20151125
  Serious: Yes (Hospitalization)
  Sender: FDA-Public Use
  Company Number: FR-ARIAD PHARMACEUTICALS, INC-2015FR004444

PATIENT
  Age: 87 Year
  Sex: Female
  Weight: 62 kg

DRUGS (9)
  1. CRESTOR [Concomitant]
     Active Substance: ROSUVASTATIN CALCIUM
     Indication: HYPERCHOLESTEROLAEMIA
     Dosage: UNK
     Route: 048
     Dates: start: 20110330
  2. DUOPLAVIN [Concomitant]
     Active Substance: ASPIRIN\CLOPIDOGREL
     Indication: ARTERIAL DISORDER
     Dosage: UNK
     Route: 048
     Dates: start: 20120927
  3. ALTIZIDE W/SPIRONOLACTONE [Concomitant]
     Active Substance: ALTHIAZIDE\SPIRONOLACTONE
     Indication: HYPERTENSION
     Dosage: UNK
     Route: 048
     Dates: start: 20110330
  4. PONATINIB [Suspect]
     Active Substance: PONATINIB
     Dosage: 15 MG, QD
     Route: 048
     Dates: start: 20130626
  5. NAFTIDROFURYL [Concomitant]
     Active Substance: NAFRONYL
     Indication: INTERMITTENT CLAUDICATION
     Dosage: UNK
     Route: 048
     Dates: start: 20121229
  6. GLYCEROL\PARAFFIN [Concomitant]
     Active Substance: GLYCERIN\PARAFFIN
     Indication: DRY SKIN
     Dosage: UNK
     Route: 061
     Dates: start: 20120502
  7. TOPALGIC [Concomitant]
     Active Substance: TRAMADOL
     Indication: PAIN IN EXTREMITY
     Dosage: UNK
     Route: 048
     Dates: start: 20130402
  8. PONATINIB [Suspect]
     Active Substance: PONATINIB
     Indication: CHRONIC MYELOID LEUKAEMIA
     Dosage: 30 MG, QD
     Route: 048
     Dates: start: 20110531, end: 20130625
  9. ATACAND [Concomitant]
     Active Substance: CANDESARTAN CILEXETIL
     Indication: HYPERTENSION
     Dosage: UNK
     Route: 048
     Dates: start: 20090401

REACTIONS (1)
  - Carotid artery stenosis [Recovered/Resolved]

NARRATIVE: CASE EVENT DATE: 20130603
